FAERS Safety Report 18968507 (Version 1)
Quarter: 2021Q1

REPORT INFORMATION
  Report Type: Spontaneous
  Country: FR (occurrence: FR)
  Receive Date: 20210304
  Receipt Date: 20210304
  Transmission Date: 20210420
  Serious: Yes (Hospitalization)
  Sender: FDA-Public Use
  Company Number: FR-ARBOR PHARMACEUTICALS, LLC-FR-2021ARB000208

PATIENT
  Age: 68 Year
  Weight: 90 kg

DRUGS (6)
  1. TRIPTODUR [Suspect]
     Active Substance: TRIPTORELIN
     Indication: PROSTATE CANCER
     Dosage: UNSPECIFIED (STRENGTH: NOT REPORTED)
     Route: 030
     Dates: start: 20200910, end: 202011
  2. TRIPTODUR [Suspect]
     Active Substance: TRIPTORELIN
  3. TRIPTODUR [Suspect]
     Active Substance: TRIPTORELIN
  4. TENORMINE [Suspect]
     Active Substance: ATENOLOL
     Indication: CARDIAC STRESS TEST
     Dosage: UNSPECIFIED
     Route: 048
     Dates: start: 20201028, end: 20201028
  5. ATROPINE. [Suspect]
     Active Substance: ATROPINE
     Indication: CARDIAC STRESS TEST
     Dosage: UNSPECIFIED
     Route: 042
     Dates: start: 20201028, end: 20201028
  6. DOBUTAMINE [Suspect]
     Active Substance: DOBUTAMINE HYDROCHLORIDE
     Indication: CARDIAC STRESS TEST
     Dosage: UNSPECIFIED
     Route: 042
     Dates: start: 20201028, end: 20201028

REACTIONS (1)
  - Drug reaction with eosinophilia and systemic symptoms [Recovered/Resolved]

NARRATIVE: CASE EVENT DATE: 20201102
